FAERS Safety Report 8789565 (Version 2)
Quarter: 2012Q4

REPORT INFORMATION
  Report Type: Spontaneous
  Country: US (occurrence: None)
  Receive Date: 20120905
  Receipt Date: 20121002
  Transmission Date: 20130627
  Serious: Yes (Hospitalization)
  Sender: FDA-Public Use
  Company Number: HA12-255-AE

PATIENT
  Age: 61 Year
  Sex: Male
  Weight: 81.65 kg

DRUGS (10)
  1. IBUPROFEN TABLETS, USP 200MG (ORANGE TABLET) (AMNEAL) [Suspect]
     Indication: FOOT PAIN
     Route: 048
     Dates: start: 201208, end: 201208
  2. INSULIN LISPRO (HUMALOG) [Concomitant]
  3. FAMOTIDINE [Concomitant]
  4. METHYLPREDNISOLONE [Concomitant]
  5. PRAVASTATIN [Concomitant]
  6. LISINOPRIL [Concomitant]
  7. FUROSEMIDE [Concomitant]
  8. CLOPIDOGREL [Concomitant]
  9. CARVEDILOL [Concomitant]
  10. ASPIRIN [Concomitant]

REACTIONS (3)
  - Pruritus [None]
  - Hypersensitivity [None]
  - Urticaria [None]
